FAERS Safety Report 9842510 (Version 1)
Quarter: 2013Q4

REPORT INFORMATION
  Report Type: Spontaneous
  Country: US (occurrence: None)
  Receive Date: 20131223
  Receipt Date: 20131223
  Transmission Date: 20140711
  Serious: Yes (Other)
  Sender: FDA-Public Use
  Company Number: 221930LEO

PATIENT
  Age: 58 Year
  Sex: Female

DRUGS (2)
  1. PICATO [Suspect]
     Indication: SOLAR LENTIGO
     Route: 061
     Dates: start: 20130514, end: 20130516
  2. ALDACTONE(SPIRONOLACTONE) [Concomitant]

REACTIONS (6)
  - Application site erythema [None]
  - Application site pain [None]
  - Application site vesicles [None]
  - Application site pain [None]
  - Off label use [None]
  - Inappropriate schedule of drug administration [None]
